FAERS Safety Report 8791662 (Version 3)
Quarter: 2012Q4

REPORT INFORMATION
  Report Type: 
  Country: FR (occurrence: FR)
  Receive Date: 20120918
  Receipt Date: 20121221
  Transmission Date: 20130627
  Serious: Yes (Death, Life-Threatening)
  Sender: FDA-Public Use
  Company Number: FR-ASTRAZENECA-2012SE72204

PATIENT
  Age: 21931 Day
  Sex: Female
  Weight: 87 kg

DRUGS (10)
  1. XEROQUEL [Suspect]
     Indication: SCHIZOAFFECTIVE DISORDER
     Route: 048
     Dates: start: 2012
  2. XEROQUEL [Suspect]
     Indication: SCHIZOAFFECTIVE DISORDER
     Route: 048
     Dates: start: 20120427
  3. GAVISCON [Concomitant]
  4. LEVOTHYROX [Concomitant]
  5. LEPTICUR [Concomitant]
     Indication: ABNORMAL BEHAVIOUR
     Route: 048
  6. RISPERDALORO [Concomitant]
     Indication: ABNORMAL BEHAVIOUR
     Route: 048
  7. PARIET [Concomitant]
     Indication: GASTRITIS
     Route: 048
  8. VALIUM [Concomitant]
  9. TERCIAN [Concomitant]
     Indication: ABNORMAL BEHAVIOUR
     Route: 048
  10. DEPAKOTE [Concomitant]
     Indication: ABNORMAL BEHAVIOUR
     Route: 048

REACTIONS (3)
  - Gastrointestinal haemorrhage [Fatal]
  - Acute abdomen [Fatal]
  - Haematemesis [Fatal]
